FAERS Safety Report 13281951 (Version 1)
Quarter: 2017Q1

REPORT INFORMATION
  Report Type: Spontaneous
  Country: US (occurrence: US)
  Receive Date: 20170301
  Receipt Date: 20170301
  Transmission Date: 20170428
  Serious: No
  Sender: FDA-Public Use
  Company Number: US-FERRINGPH-2016FE04620

PATIENT
  Sex: Male

DRUGS (1)
  1. STIMATE [Suspect]
     Active Substance: DESMOPRESSIN ACETATE
     Indication: VON WILLEBRAND^S DISEASE
     Dosage: 300 ?G, AS NEEDED
     Route: 045
     Dates: start: 20151113

REACTIONS (3)
  - Headache [Unknown]
  - Abdominal pain upper [Unknown]
  - Lethargy [Unknown]
